FAERS Safety Report 18210322 (Version 1)
Quarter: 2020Q3

REPORT INFORMATION
  Report Type: Report from Study
  Country: None (occurrence: US)
  Receive Date: 20200829
  Receipt Date: 20200829
  Transmission Date: 20201103
  Serious: Yes (Hospitalization)
  Sender: FDA-Public Use
  Company Number: US-ABBVIE-20K-163-3542893-00

PATIENT
  Sex: Female

DRUGS (2)
  1. HUMIRA [Suspect]
     Active Substance: ADALIMUMAB
     Indication: PSORIASIS
     Dosage: LOADING DOSE DAY 1
     Route: 058
     Dates: start: 202004, end: 202004
  2. HUMIRA [Suspect]
     Active Substance: ADALIMUMAB
     Route: 058
     Dates: start: 2020, end: 202006

REACTIONS (5)
  - Post procedural complication [Unknown]
  - Tricuspid valve incompetence [Unknown]
  - Psoriasis [Unknown]
  - Device lead issue [Unknown]
  - Heart injury [Unknown]

NARRATIVE: CASE EVENT DATE: 2020
